FAERS Safety Report 6152125-0 (Version None)
Quarter: 2009Q2

REPORT INFORMATION
  Report Type: 
  Country: None (occurrence: None)
  Receive Date: 20090410
  Receipt Date: 20090329
  Transmission Date: 20091009
  Serious: Yes (Other)
  Sender: FDA-Public Use
  Company Number: US-PFIZER INC-2009192371

PATIENT
  Sex: Female
  Weight: 43.084 kg

DRUGS (12)
  1. CHANTIX [Suspect]
     Indication: SMOKING CESSATION THERAPY
     Dosage: 0.5 MG, 1X/DAY
     Dates: start: 20090326
  2. SYNTHROID [Concomitant]
     Dosage: UNK
  3. REDON [Concomitant]
     Dosage: UNK
  4. ALLEGRA [Concomitant]
     Dosage: UNK
  5. PROTONIX [Concomitant]
     Dosage: UNK
  6. PROLACTIN [Concomitant]
     Dosage: UNK
  7. ZOFRAN [Concomitant]
     Dosage: UNK
  8. CARAFATE [Concomitant]
     Dosage: UNK
  9. NYSTATIN [Concomitant]
     Dosage: UNK
  10. CALCIUM [Concomitant]
     Dosage: UNK
  11. MULTI-VITAMINS [Concomitant]
     Dosage: UNK
  12. OXYCODONE [Concomitant]
     Dosage: UNK

REACTIONS (1)
  - HOMICIDAL IDEATION [None]
